FAERS Safety Report 23868521 (Version 1)
Quarter: 2024Q2

REPORT INFORMATION
  Report Type: Spontaneous
  Country: US (occurrence: US)
  Receive Date: 20240517
  Receipt Date: 20240517
  Transmission Date: 20240715
  Serious: No
  Sender: FDA-Public Use
  Company Number: US-AMGEN-USASP2024095497

PATIENT
  Age: 65 Year
  Sex: Female

DRUGS (1)
  1. EVENITY [Suspect]
     Active Substance: ROMOSOZUMAB-AQQG
     Indication: Osteoporosis
     Dosage: 210 MILLIGRAM, QMO
     Route: 058
     Dates: start: 2024

REACTIONS (8)
  - Injection site pain [Unknown]
  - Fatigue [Unknown]
  - Dyspnoea [Unknown]
  - Hot flush [Unknown]
  - Peripheral swelling [Unknown]
  - Arthralgia [Unknown]
  - Headache [Unknown]
  - Chest discomfort [Unknown]

NARRATIVE: CASE EVENT DATE: 20240101
